FAERS Safety Report 16279901 (Version 2)
Quarter: 2019Q2

REPORT INFORMATION
  Report Type: Spontaneous
  Country: US (occurrence: US)
  Receive Date: 20190507
  Receipt Date: 20190507
  Transmission Date: 20190711
  Serious: Yes (Hospitalization, Other)
  Sender: FDA-Public Use
  Company Number: US-AUROBINDO-AUR-APL-2019-020046

PATIENT

DRUGS (1)
  1. ACETAMINOPHEN. [Suspect]
     Active Substance: ACETAMINOPHEN
     Indication: PRODUCT USED FOR UNKNOWN INDICATION
     Dosage: 60 DOSAGE FORM TOTAL
     Route: 048

REACTIONS (7)
  - Mental status changes [Unknown]
  - Intentional overdose [Unknown]
  - Chest discomfort [Unknown]
  - Hepatotoxicity [Unknown]
  - Headache [Unknown]
  - Toxicity to various agents [Unknown]
  - Lethargy [Unknown]
